FAERS Safety Report 7550519-X (Version None)
Quarter: 2011Q2

REPORT INFORMATION
  Report Type: 
  Country: None (occurrence: None)
  Receive Date: 20110615
  Receipt Date: 20110606
  Transmission Date: 20111010
  Serious: Yes (Other)
  Sender: FDA-Public Use
  Company Number: US-ELI_LILLY_AND_COMPANY-US201106001911

PATIENT
  Age: 83 Year
  Sex: Female
  Weight: 68.481 kg

DRUGS (11)
  1. LYRICA [Concomitant]
     Dosage: 25 MG, QD
     Dates: start: 20110407
  2. DITROPAN [Concomitant]
  3. CAPSAICIN [Concomitant]
     Indication: NEUROPATHY PERIPHERAL
  4. CYMBALTA [Suspect]
     Indication: NEUROPATHY PERIPHERAL
     Dosage: UNK
     Route: 048
     Dates: start: 20110407
  5. LYRICA [Concomitant]
     Indication: NEUROPATHY PERIPHERAL
     Dosage: UNK, UNKNOWN
  6. TOPROL-XL [Concomitant]
  7. ATENOLOL [Concomitant]
     Dosage: UNK
  8. LIDOCAINE [Concomitant]
     Indication: NEUROPATHY PERIPHERAL
     Route: 062
  9. VITAMIN TAB [Concomitant]
  10. ENABLEX                            /01760402/ [Concomitant]
  11. LYRICA [Concomitant]
     Dosage: 50 MG, QD
     Dates: start: 20110505

REACTIONS (10)
  - ATAXIA [None]
  - ANXIETY [None]
  - MYALGIA [None]
  - GAIT DISTURBANCE [None]
  - FATIGUE [None]
  - DRUG INEFFECTIVE [None]
  - INSOMNIA [None]
  - DIZZINESS [None]
  - PAIN [None]
  - ABDOMINAL PAIN UPPER [None]
